FAERS Safety Report 23708220 (Version 1)
Quarter: 2024Q2

REPORT INFORMATION
  Report Type: Spontaneous
  Country: AT (occurrence: AT)
  Receive Date: 20240404
  Receipt Date: 20240404
  Transmission Date: 20240716
  Serious: Yes (Hospitalization)
  Sender: FDA-Public Use
  Company Number: AT-ALCON-ALCN2014AT004606

PATIENT

DRUGS (1)
  1. CYCLOPENTOLATE HYDROCHLORIDE [Suspect]
     Active Substance: CYCLOPENTOLATE HYDROCHLORIDE
     Indication: Dacryostenosis acquired
     Dosage: 1 DF, ONCE/SINGLE
     Route: 047

REACTIONS (15)
  - Hypotension [Recovered/Resolved]
  - Angioedema [Recovered/Resolved]
  - General physical health deterioration [Recovered/Resolved]
  - Periorbital oedema [Recovered/Resolved]
  - Face oedema [Recovered/Resolved]
  - Tongue oedema [Recovered/Resolved]
  - Administration site pain [Recovered/Resolved]
  - Tongue erythema [Recovered/Resolved]
  - Swelling face [Recovered/Resolved]
  - Eye pain [Recovered/Resolved]
  - Erythema [Recovered/Resolved]
  - Fatigue [Recovered/Resolved]
  - Hypersensitivity [Recovered/Resolved]
  - Dizziness [Recovered/Resolved]
  - Off label use [Unknown]
